FAERS Safety Report 9486544 (Version 1)
Quarter: 2013Q3

REPORT INFORMATION
  Report Type: Spontaneous
  Country: TR (occurrence: None)
  Receive Date: 20130823
  Receipt Date: 20130823
  Transmission Date: 20140515
  Serious: Yes (Hospitalization)
  Sender: FDA-Public Use
  Company Number: 2013P1018620

PATIENT
  Age: 78 Year
  Sex: Female

DRUGS (3)
  1. LITHIUM [Suspect]
     Indication: BIPOLAR DISORDER
  2. OLANZAPINE [Suspect]
     Indication: BIPOLAR DISORDER
  3. SERTRALINE [Concomitant]

REACTIONS (16)
  - Hypophagia [None]
  - Diarrhoea [None]
  - Somnolence [None]
  - Disorientation [None]
  - Tremor [None]
  - Balance disorder [None]
  - Abasia [None]
  - Confusional state [None]
  - Hyporeflexia [None]
  - Ataxia [None]
  - Partial seizures [None]
  - Cerebral atrophy [None]
  - Status epilepticus [None]
  - Toxicity to various agents [None]
  - Prerenal failure [None]
  - Neurotoxicity [None]
